FAERS Safety Report 6076413-1 (Version None)
Quarter: 2009Q1

REPORT INFORMATION
  Report Type: 
  Country: None (occurrence: None)
  Receive Date: 20090213
  Receipt Date: 20090203
  Transmission Date: 20090719
  Serious: Yes (Other)
  Sender: FDA-Public Use
  Company Number: ES-JNJFOC-20090201656

PATIENT
  Sex: Female

DRUGS (4)
  1. REMICADE [Suspect]
     Indication: RHEUMATOID ARTHRITIS
     Route: 042
  2. URBASON [Concomitant]
  3. REXER [Concomitant]
     Dosage: ^30^
  4. CALCIUM VITAMIN D [Concomitant]
     Dosage: ^30^

REACTIONS (2)
  - ADRENAL ADENOMA [None]
  - COLITIS [None]
